FAERS Safety Report 5734621-0 (Version None)
Quarter: 2008Q2

REPORT INFORMATION
  Report Type: 
  Country: None (occurrence: None)
  Receive Date: 20080512
  Receipt Date: 20080507
  Transmission Date: 20081010
  Serious: Yes (Death)
  Sender: FDA-Public Use
  Company Number: PHHY2008ES07247

PATIENT

DRUGS (5)
  1. PROPOFOL [Suspect]
     Dates: start: 20060507
  2. ZANTAC [Suspect]
     Dosage: 10 MG/DAY
     Dates: start: 20060507
  3. SEGURIL [Suspect]
     Dosage: 240 MG, TID
     Dates: start: 20060507
  4. CELLCEPT [Suspect]
     Dosage: 1 G, BID
     Dates: start: 20060507, end: 20060522
  5. SANDIMMUNE [Suspect]
     Dosage: 400 MG, BID
     Route: 048
     Dates: start: 20060507, end: 20060522

REACTIONS (1)
  - PANCREATITIS NECROTISING [None]
